FAERS Safety Report 7208311-1 (Version None)
Quarter: 2010Q4

REPORT INFORMATION
  Report Type: 
  Country: None (occurrence: None)
  Receive Date: 20101230
  Receipt Date: 20101230
  Transmission Date: 20110411
  Serious: Yes (Hospitalization)
  Sender: FDA-Public Use
  Company Number: None

PATIENT
  Sex: Female
  Weight: 77 kg

DRUGS (1)
  1. MULTAQ [Suspect]
     Dosage: 400MG BID PO
     Route: 048
     Dates: start: 20101101, end: 20101201

REACTIONS (3)
  - BRADYCARDIA [None]
  - HEPATOTOXICITY [None]
  - SYNCOPE [None]
